FAERS Safety Report 23872523 (Version 1)
Quarter: 2024Q2

REPORT INFORMATION
  Report Type: Spontaneous
  Country: GB (occurrence: GB)
  Receive Date: 20240520
  Receipt Date: 20240520
  Transmission Date: 20240715
  Serious: Yes (Other)
  Sender: FDA-Public Use
  Company Number: None

PATIENT
  Age: 36 Year
  Sex: Female
  Weight: 53 kg

DRUGS (16)
  1. METOCLOPRAMIDE [Suspect]
     Active Substance: METOCLOPRAMIDE
     Indication: Ill-defined disorder
     Dosage: UNK
     Route: 065
     Dates: start: 20240513
  2. AMITRIPTYLINE HYDROCHLORIDE [Concomitant]
     Active Substance: AMITRIPTYLINE HYDROCHLORIDE
     Indication: Ill-defined disorder
     Dosage: (DOSAGE TEXT: USE ONE A NIGHT, AFTER A FEW DAYS, TAKE 2 AT NIGHT, INCREASING TO THREE IF NEEDED)
     Route: 065
     Dates: start: 20240327, end: 20240424
  3. CITALOPRAM [Concomitant]
     Active Substance: CITALOPRAM\CITALOPRAM HYDROBROMIDE
     Indication: Ill-defined disorder
     Dosage: (DOSAGE TEXT: TAKE TWO A DAY IN THE MORNING)
     Route: 065
     Dates: start: 20240409
  4. CODEINE PHOSPHATE [Concomitant]
     Active Substance: CODEINE PHOSPHATE
     Indication: Ill-defined disorder
     Dosage: (DOSAGE TEXT: TAKE ONE OR TWO TABLETS UP TO 4 TIMES A DAY)
     Route: 065
     Dates: start: 20240304, end: 20240318
  5. DIAZEPAM [Concomitant]
     Active Substance: DIAZEPAM
     Indication: Ill-defined disorder
     Dosage: (DOSAGE TEXT: TAKE ONE AT NIGHT FOR UP TO 1 WEEK)
     Route: 065
     Dates: start: 20240430, end: 20240507
  6. FAMOTIDINE [Concomitant]
     Active Substance: FAMOTIDINE
     Indication: Ill-defined disorder
     Dosage: (DOSAGE TEXT: TAKE TWICE A DAY)
     Route: 065
     Dates: start: 20240409
  7. GABAPENTIN [Concomitant]
     Active Substance: GABAPENTIN
     Indication: Ill-defined disorder
     Dosage: (DOSAGE TEXT: TAKE ONE CAPSULE DAILY, AFTER 2-3 DAYS INCREASE)
     Route: 065
     Dates: start: 20240328, end: 20240427
  8. POTASSIUM BICARBONATE\SODIUM ALGINATE [Concomitant]
     Active Substance: POTASSIUM BICARBONATE\SODIUM ALGINATE
     Indication: Ill-defined disorder
     Dosage: (DOSAGE TEXT: ONE OR TWO 5ML SPOONFULS TO BE TAKEN AFTER MEAL)
     Route: 065
     Dates: start: 20220509
  9. POLYETHYLENE GLYCOL 3350\POTASSIUM CHLORIDE\SODIUM BICARBONATE\SODIUM [Concomitant]
     Active Substance: POLYETHYLENE GLYCOL 3350\POTASSIUM CHLORIDE\SODIUM BICARBONATE\SODIUM CHLORIDE
     Indication: Ill-defined disorder
     Dosage: (DOSAGE TEXT: TAKE ONE OR TWO SACHETS DAILY AS REQUIRED)
     Route: 065
     Dates: start: 20240304, end: 20240318
  10. METOCLOPRAMIDE [Concomitant]
     Active Substance: METOCLOPRAMIDE
     Indication: Ill-defined disorder
     Dosage: (DOSAGE TEXT: ONE TO BE TAKEN THREE TIMES A DAY WHEN REQUIRED)
     Route: 065
     Dates: start: 20220509
  11. NITROFURANTOIN [Concomitant]
     Active Substance: NITROFURANTOIN
     Indication: Ill-defined disorder
     Dosage: (DOSAGE TEXT: TAKE ONE TWICE DAILY)
     Route: 065
     Dates: start: 20240221, end: 20240224
  12. ACETAMINOPHEN [Concomitant]
     Active Substance: ACETAMINOPHEN
     Indication: Ill-defined disorder
     Dosage: (DOSAGE TEXT: TAKE 1 OR 2, 4 TIMES/DAY)
     Route: 065
     Dates: start: 20240325
  13. AMDINOCILLIN PIVOXIL [Concomitant]
     Active Substance: AMDINOCILLIN PIVOXIL
     Indication: Ill-defined disorder
     Dosage: (DOSAGE TEXT: TAKE TWO TABLETS THEN TAKE ONE TABLET THREE TIMES A DAY FOR 3 DAYS)
     Route: 065
     Dates: start: 20240325, end: 20240328
  14. RABEPRAZOLE [Concomitant]
     Active Substance: RABEPRAZOLE
     Indication: Ill-defined disorder
     Dosage: (DOSAGE TEXT: ONE OR TWO TO BE TAKEN EACH DAY)
     Route: 065
     Dates: start: 20220712, end: 20240304
  15. SERTRALINE [Concomitant]
     Active Substance: SERTRALINE HYDROCHLORIDE
     Indication: Ill-defined disorder
     Dosage: (DOSAGE TEXT: ONE TO BE TAKEN EACH DAY)
     Route: 065
     Dates: start: 20220509, end: 20240304
  16. TRAMADOL [Concomitant]
     Active Substance: TRAMADOL\TRAMADOL HYDROCHLORIDE
     Indication: Ill-defined disorder
     Dosage: (DOSAGE TEXT: TAKE 1 OR 2 EVERY 4-6 HRS)
     Route: 065
     Dates: start: 20240315, end: 20240412

REACTIONS (2)
  - Psychotic disorder [Recovering/Resolving]
  - Suicidal ideation [Recovering/Resolving]

NARRATIVE: CASE EVENT DATE: 20240513
